FAERS Safety Report 6768956-X (Version None)
Quarter: 2010Q2

REPORT INFORMATION
  Report Type: 
  Country: None (occurrence: None)
  Receive Date: 20100615
  Receipt Date: 20100607
  Transmission Date: 20101027
  Serious: Yes (Hospitalization)
  Sender: FDA-Public Use
  Company Number: US-BIOGENIDEC-2010BI015146

PATIENT
  Sex: Female

DRUGS (3)
  1. AVONEX [Suspect]
     Indication: MULTIPLE SCLEROSIS
     Route: 030
     Dates: start: 20010315, end: 20080101
  2. AVONEX [Suspect]
     Route: 030
     Dates: start: 20080101, end: 20100401
  3. AVONEX [Suspect]
     Route: 030
     Dates: start: 20100509

REACTIONS (1)
  - DECUBITUS ULCER [None]
